FAERS Safety Report 9932794 (Version 1)
Quarter: 2014Q1

REPORT INFORMATION
  Report Type: Spontaneous
  Country: US (occurrence: US)
  Receive Date: 20140228
  Receipt Date: 20140228
  Transmission Date: 20141002
  Serious: No
  Sender: FDA-Public Use
  Company Number: US-GLAXOSMITHKLINE-A1028456A

PATIENT
  Age: 64 Year
  Sex: Male

DRUGS (8)
  1. LOSARTAN [Suspect]
     Indication: PRODUCT USED FOR UNKNOWN INDICATION
     Dosage: 100MG UNKNOWN
     Route: 065
  2. LAMOTRIGINE [Suspect]
     Indication: PRODUCT USED FOR UNKNOWN INDICATION
     Dosage: 100MG PER DAY
     Route: 048
     Dates: start: 20130603, end: 20130611
  3. FLUOCINONIDE [Suspect]
     Indication: RASH
     Route: 065
  4. DILTIAZEM ER [Concomitant]
  5. VITAMINS [Concomitant]
  6. METOPROLOL [Concomitant]
  7. LOSARTAN WITH HYDROCHLOROTHIAZIDE [Concomitant]
  8. CLONAZEPAM [Concomitant]

REACTIONS (2)
  - Drug dispensing error [Unknown]
  - Drug ineffective [Unknown]
